FAERS Safety Report 12192655 (Version 3)
Quarter: 2016Q2

REPORT INFORMATION
  Report Type: Spontaneous
  Country: US (occurrence: US)
  Receive Date: 20160318
  Receipt Date: 20160605
  Transmission Date: 20160815
  Serious: Yes (Other)
  Sender: FDA-Public Use
  Company Number: US-TEVA-643990USA

PATIENT
  Age: 29 Year
  Sex: Female

DRUGS (2)
  1. ZECUITY [Suspect]
     Active Substance: SUMATRIPTAN SUCCINATE
     Dosage: 6.5MG/4 HOURS
     Route: 062
     Dates: start: 20160225
  2. ZECUITY [Suspect]
     Active Substance: SUMATRIPTAN SUCCINATE
     Dosage: 6.5MG/4 HOURS
     Route: 062
     Dates: start: 20160315, end: 20160315

REACTIONS (8)
  - Device leakage [Unknown]
  - Sunburn [Recovered/Resolved]
  - Application site erythema [Recovered/Resolved]
  - Product quality issue [Recovered/Resolved]
  - Application site warmth [Recovered/Resolved]
  - Application site paraesthesia [Recovered/Resolved]
  - Device battery issue [Recovered/Resolved]
  - Application site burn [Recovered/Resolved]

NARRATIVE: CASE EVENT DATE: 20160225
